FAERS Safety Report 4497987-8 (Version None)
Quarter: 2004Q4

REPORT INFORMATION
  Report Type: 
  Country: None (occurrence: None)
  Receive Date: 20041109
  Receipt Date: 20041109
  Transmission Date: 20050328
  Serious: Yes (Hospitalization)
  Sender: FDA-Public Use
  Company Number: None

PATIENT
  Age: 54 Year
  Sex: Male
  Weight: 69.8539 kg

DRUGS (14)
  1. WARFARIN SODIUM [Suspect]
     Indication: MITRAL VALVE REPLACEMENT
     Dosage: 3 MG DAILY ORAL
     Route: 048
     Dates: start: 20040416, end: 20040829
  2. HEPARIN SODIUM 25,000 UNITS IN DEXTROSE 5% [Suspect]
     Indication: ANTICOAGULANT THERAPY
     Dosage: 50 UNITS 1200U/HR INTRAVENOUS
     Route: 042
     Dates: start: 20040903, end: 20040910
  3. ASPIRIN [Concomitant]
  4. LORATADINE [Concomitant]
  5. METOPROLOL TARTRATE [Concomitant]
  6. NAPROXEN [Concomitant]
  7. OMEPRAZOLE [Concomitant]
  8. SEVELAMER HCL [Concomitant]
  9. NEPHRO-VITE [Concomitant]
  10. FLUOXETINE HCL [Concomitant]
  11. CEPHALEXIN [Concomitant]
  12. CLONAZEPAM [Concomitant]
  13. NITROGLYCERIN [Concomitant]
  14. AMOXICILLIN [Concomitant]

REACTIONS (2)
  - CATHETER SITE DISCHARGE [None]
  - CATHETER SITE HAEMORRHAGE [None]
